FAERS Safety Report 24218968 (Version 1)
Quarter: 2024Q3

REPORT INFORMATION
  Report Type: Spontaneous
  Country: US (occurrence: US)
  Receive Date: 20240816
  Receipt Date: 20240816
  Transmission Date: 20241017
  Serious: No
  Sender: SANOFI AVENTIS
  Company Number: US-SA-SAC20240814000190

PATIENT
  Age: 68 Year
  Sex: Male

DRUGS (2)
  1. DUPIXENT [Suspect]
     Active Substance: DUPILUMAB
     Indication: Chronic obstructive pulmonary disease
     Dosage: 600 MG: 1X
     Route: 058
     Dates: start: 20240604, end: 20240604
  2. DUPIXENT [Suspect]
     Active Substance: DUPILUMAB
     Dosage: DUPIXENT ON THE 3RD AND 18TH OF EVERY MONTH AND SOMETIMES THE 19TH OR 20TH
     Route: 058
     Dates: start: 202406

REACTIONS (3)
  - Intentional product misuse [Unknown]
  - Product use in unapproved indication [Unknown]
  - Incorrect dose administered [Unknown]

NARRATIVE: CASE EVENT DATE: 20240601
